FAERS Safety Report 7902851-5 (Version None)
Quarter: 2011Q4

REPORT INFORMATION
  Report Type: 
  Country: None (occurrence: None)
  Receive Date: 20111104
  Receipt Date: 20111024
  Transmission Date: 20120403
  Serious: Yes (Hospitalization)
  Sender: FDA-Public Use
  Company Number: 2011SP050214

PATIENT
  Age: 82 Year
  Sex: Male
  Weight: 54 kg

DRUGS (6)
  1. NEXIUM [Concomitant]
  2. TEMOZOLOMIDE [Suspect]
     Indication: GLIOBLASTOMA
     Dosage: 150 MG/M2;PO
     Route: 048
     Dates: start: 20110601, end: 20110919
  3. KEPPRA [Concomitant]
  4. MEDROL [Concomitant]
  5. BEVACIZUMAB (BEVACIZUMAB) [Suspect]
     Indication: GLIOBLASTOMA
     Dosage: 10 MG/KG
     Dates: start: 20110506, end: 20110729
  6. ATORVASTATIN CALCIUM [Concomitant]

REACTIONS (5)
  - FAECALOMA [None]
  - GLIOBLASTOMA [None]
  - NEOPLASM PROGRESSION [None]
  - URINARY TRACT INFECTION [None]
  - URINARY RETENTION [None]
